FAERS Safety Report 4972315-X (Version None)
Quarter: 2006Q2

REPORT INFORMATION
  Report Type: 
  Country: None (occurrence: None)
  Receive Date: 20060413
  Receipt Date: 20030513
  Transmission Date: 20061013
  Serious: Yes (Hospitalization)
  Sender: FDA-Public Use
  Company Number: US-BOEHRINGER INGELHEIM PHARMACEUTICALS, INC.-2003-DE-01844GD

PATIENT
  Age: 26 Year
  Sex: Female

DRUGS (5)
  1. NEVIRAPINE [Suspect]
     Indication: HIV INFECTION
  2. NEVIRAPINE [Suspect]
  3. ZIDOVUDINE [Suspect]
     Indication: HIV INFECTION
  4. LAMIVUDINE [Suspect]
     Indication: HIV INFECTION
  5. MULTIVITAMIN [Concomitant]

REACTIONS (12)
  - CAESAREAN SECTION [None]
  - COAGULATION TEST ABNORMAL [None]
  - DRUG EXPOSURE DURING PREGNANCY [None]
  - EOSINOPHILIA [None]
  - HEPATIC ENZYME INCREASED [None]
  - HEPATITIS [None]
  - HYPERSENSITIVITY [None]
  - OCULAR ICTERUS [None]
  - PREMATURE BABY [None]
  - PYREXIA [None]
  - RENAL FAILURE [None]
  - URTICARIA [None]
